FAERS Safety Report 6625510-8 (Version None)
Quarter: 2010Q1

REPORT INFORMATION
  Report Type: 
  Country: None (occurrence: None)
  Receive Date: 20100223
  Receipt Date: 20091023
  Transmission Date: 20100710
  Serious: No
  Sender: FDA-Public Use
  Company Number: 8053810

PATIENT
  Sex: Female

DRUGS (2)
  1. CIMZIA (UCB, INC) [Suspect]
     Indication: PSORIATIC ARTHROPATHY
     Dosage: (400 MG 1X/2 WEEKS, EVERY OTHER WEEK SUBCUTANEOUS)
     Route: 058
  2. INFLUENZA VACCINE [Suspect]
     Dosage: (SINGLE DOSE - NR OF DOSES: 1)
     Dates: start: 20091023, end: 20091023

REACTIONS (3)
  - INJECTION SITE ERYTHEMA [None]
  - MYALGIA [None]
  - OFF LABEL USE [None]
